FAERS Safety Report 14143969 (Version 2)
Quarter: 2017Q4

REPORT INFORMATION
  Report Type: Spontaneous
  Country: CA (occurrence: CA)
  Receive Date: 20171031
  Receipt Date: 20171103
  Transmission Date: 20180321
  Serious: Yes (Hospitalization, Other)
  Sender: FDA-Public Use
  Company Number: CA-ORION CORPORATION ORION PHARMA-TREX2017-3260

PATIENT
  Age: 76 Year
  Sex: Male

DRUGS (4)
  1. SALOFALK [Suspect]
     Active Substance: MESALAMINE
     Route: 065
  2. METHOTREXATE (TRADE NAME UNKNOWN) [Suspect]
     Active Substance: METHOTREXATE
     Route: 058
     Dates: start: 2016
  3. MEZAVANT [Suspect]
     Active Substance: MESALAMINE
     Route: 065
  4. PREDNISONE. [Suspect]
     Active Substance: PREDNISONE
     Route: 065

REACTIONS (8)
  - Haematochezia [Unknown]
  - Obstruction [Unknown]
  - Proctalgia [Unknown]
  - Fatigue [Unknown]
  - Frequent bowel movements [Unknown]
  - Drug ineffective [Unknown]
  - Abdominal pain [Unknown]
  - Mucous stools [Unknown]
